FAERS Safety Report 10017686 (Version 1)
Quarter: 2014Q1

REPORT INFORMATION
  Report Type: Spontaneous
  Country: JP (occurrence: JP)
  Receive Date: 20140318
  Receipt Date: 20140318
  Transmission Date: 20141002
  Serious: Yes (Other)
  Sender: FDA-Public Use
  Company Number: JP-SA-2014SA032316

PATIENT
  Age: 20 Year
  Sex: 0

DRUGS (1)
  1. ALLEGRA FX [Suspect]
     Indication: SEASONAL ALLERGY
     Route: 065

REACTIONS (1)
  - Blood lactate dehydrogenase increased [Unknown]
